FAERS Safety Report 14323372 (Version 4)
Quarter: 2018Q1

REPORT INFORMATION
  Report Type: Other
  Country: PL (occurrence: PL)
  Receive Date: 20171226
  Receipt Date: 20180223
  Transmission Date: 20180509
  Serious: Yes (Hospitalization, Other)
  Sender: FDA-Public Use
  Company Number: PL-MERCK KGAA-2037715

PATIENT
  Age: 81 Year
  Sex: Female

DRUGS (22)
  1. NADROPARIN [Suspect]
     Active Substance: NADROPARIN
  2. ENCORTON [Suspect]
     Active Substance: PREDNISONE
  3. CARVEDILOL. [Suspect]
     Active Substance: CARVEDILOL
  4. ENCORTON [Suspect]
     Active Substance: PREDNISONE
  5. ENCORTON [Suspect]
     Active Substance: PREDNISONE
  6. FUROSEMIDE. [Suspect]
     Active Substance: FUROSEMIDE
  7. AMIODARONE [Suspect]
     Active Substance: AMIODARONE
     Dates: start: 201303, end: 2016
  8. CARVEDILOL. [Suspect]
     Active Substance: CARVEDILOL
  9. VITAMIN D [Concomitant]
     Active Substance: CHOLECALCIFEROL
  10. NOVOTHYROX [Suspect]
     Active Substance: LEVOTHYROXINE SODIUM
     Indication: PRODUCT USED FOR UNKNOWN INDICATION
  11. RIVAROXABAN [Suspect]
     Active Substance: RIVAROXABAN
  12. CARVEDILOL. [Suspect]
     Active Substance: CARVEDILOL
  13. PANTOPRAZOLE [Suspect]
     Active Substance: PANTOPRAZOLE
  14. CIPROFLOXACIN. [Suspect]
     Active Substance: CIPROFLOXACIN
     Route: 042
  15. CARVEDILOL. [Suspect]
     Active Substance: CARVEDILOL
  16. CALCIUM [Concomitant]
     Active Substance: CALCIUM
  17. CIPROFLOXACIN. [Suspect]
     Active Substance: CIPROFLOXACIN
     Route: 042
  18. CIPROFLOXACIN. [Suspect]
     Active Substance: CIPROFLOXACIN
     Route: 042
  19. HEPARIN [Suspect]
     Active Substance: HEPARIN SODIUM
  20. ENCORTON [Suspect]
     Active Substance: PREDNISONE
  21. LEVOTHYROXINE SODIUM. [Suspect]
     Active Substance: LEVOTHYROXINE SODIUM
  22. ENCORTON [Suspect]
     Active Substance: PREDNISONE

REACTIONS (12)
  - Pulmonary toxicity [Recovered/Resolved]
  - Pneumonia [Recovered/Resolved]
  - Ventricular arrhythmia [Unknown]
  - Oliguria [Unknown]
  - Fatigue [Recovered/Resolved]
  - Exercise tolerance decreased [Recovered/Resolved]
  - Cough [Unknown]
  - Atrial fibrillation [Unknown]
  - Dyspnoea [Unknown]
  - Oedema peripheral [Unknown]
  - Diarrhoea [Recovering/Resolving]
  - Palpitations [Recovered/Resolved]
